FAERS Safety Report 9287711 (Version 1)
Quarter: 2013Q2

REPORT INFORMATION
  Report Type: Spontaneous
  Country: GB (occurrence: GB)
  Receive Date: 20130514
  Receipt Date: 20130514
  Transmission Date: 20140414
  Serious: Yes (Other)
  Sender: FDA-Public Use
  Company Number: PHFR2013GB001949

PATIENT
  Age: 49 Year
  Sex: Female

DRUGS (6)
  1. CLOZARIL [Suspect]
     Indication: SCHIZOPHRENIA
     Dosage: 125 MG, BID
     Dates: start: 20121116
  2. CLOZARIL [Suspect]
     Dosage: UNK
     Route: 048
     Dates: start: 20121119
  3. LEVETIRACETAM [Concomitant]
     Indication: EPILEPSY
     Dosage: 500 MG, BID
     Route: 048
  4. SODIUM VALPROATE [Concomitant]
     Indication: EPILEPSY
     Dosage: 600 MG, BID
     Route: 048
  5. PIRENZEPINE [Concomitant]
     Indication: SALIVARY HYPERSECRETION
     Dosage: 50 MG, BID
     Route: 048
  6. BENDROFLUMETHIAZIDE [Concomitant]
     Indication: OEDEMA
     Dosage: 5 MG, ONCE IN DAY
     Route: 048

REACTIONS (2)
  - Hyperviscosity syndrome [Unknown]
  - Haemoglobin increased [Recovered/Resolved]
